FAERS Safety Report 9836882 (Version 2)
Quarter: 2014Q1

REPORT INFORMATION
  Report Type: Spontaneous
  Country: US (occurrence: US)
  Receive Date: 20140123
  Receipt Date: 20140228
  Transmission Date: 20141002
  Serious: No
  Sender: FDA-Public Use
  Company Number: US-PFIZER INC-2014017537

PATIENT
  Age: 45 Year
  Sex: Female

DRUGS (8)
  1. LYRICA [Suspect]
     Indication: PAIN
     Dosage: 50 MG, 3X/DAY
     Route: 048
  2. ZYRTEC [Suspect]
     Dosage: UNK
  3. SYNTHROID [Concomitant]
     Dosage: UNK
  4. ULTRACET [Concomitant]
     Dosage: PARACETAMOL 325 MG, TRAMADOL HYDROCHLORIDE 37.5 MG
  5. PROBIOTICS [Concomitant]
     Dosage: UNK
  6. AMITRIPTYLINE [Concomitant]
     Dosage: 50 MG, QHS
     Route: 048
  7. OMEPRAZOLE [Concomitant]
     Dosage: 40 MG, DAILY
     Route: 048
  8. ASPIRIN [Concomitant]
     Dosage: 81 MG, DAILY
     Route: 048

REACTIONS (3)
  - Back pain [Unknown]
  - Pain in extremity [Unknown]
  - Hypoaesthesia [Unknown]
